FAERS Safety Report 24082842 (Version 1)
Quarter: 2024Q3

REPORT INFORMATION
  Report Type: Spontaneous
  Country: US (occurrence: US)
  Receive Date: 20240712
  Receipt Date: 20240712
  Transmission Date: 20241017
  Serious: No
  Sender: NOVARTIS
  Company Number: US-002147023-NVSC2024US143650

PATIENT
  Sex: Female

DRUGS (1)
  1. COSENTYX [Suspect]
     Active Substance: SECUKINUMAB
     Indication: Ankylosing spondylitis
     Dosage: UNK UNK, BIW
     Route: 065

REACTIONS (9)
  - Back pain [Unknown]
  - Musculoskeletal stiffness [Unknown]
  - Posture abnormal [Unknown]
  - Musculoskeletal stiffness [Unknown]
  - Dyspnoea [Unknown]
  - Decreased appetite [Unknown]
  - Brain fog [Unknown]
  - Pain in extremity [Unknown]
  - Gait disturbance [Unknown]
